FAERS Safety Report 24357138 (Version 1)
Quarter: 2024Q3

REPORT INFORMATION
  Report Type: Report from Study
  Country: ZA (occurrence: ZA)
  Receive Date: 20240924
  Receipt Date: 20240924
  Transmission Date: 20241017
  Serious: Yes (Life-Threatening)
  Sender: ROCHE
  Company Number: ZA-ROCHE-10000086969

PATIENT
  Sex: Male

DRUGS (1)
  1. VABYSMO [Suspect]
     Active Substance: FARICIMAB\FARICIMAB-SVOA
     Indication: Macular degeneration
     Dosage: 2ND INJECTION RECEIVED ON 23/AUG/2024
     Route: 065
     Dates: start: 20240726

REACTIONS (2)
  - Cerebrovascular accident [Unknown]
  - Off label use [Unknown]
